FAERS Safety Report 23042034 (Version 5)
Quarter: 2025Q4

REPORT INFORMATION
  Report Type: Spontaneous
  Country: CR (occurrence: CR)
  Receive Date: 20231008
  Receipt Date: 20251126
  Transmission Date: 20260118
  Serious: Yes (Other)
  Sender: SANDOZ
  Company Number: CR-002147023-NVSC2023CR105843

PATIENT
  Age: 70 Year
  Sex: Female

DRUGS (5)
  1. FULVESTRANT [Suspect]
     Active Substance: FULVESTRANT
     Indication: Product used for unknown indication
     Dosage: UNK
     Route: 065
  2. KISQALI [Suspect]
     Active Substance: RIBOCICLIB SUCCINATE
     Indication: Breast cancer
     Dosage: 600 MG, QD
     Route: 048
     Dates: start: 202210
  3. KISQALI [Suspect]
     Active Substance: RIBOCICLIB SUCCINATE
     Dosage: 600 MG, QD
     Route: 048
     Dates: start: 2022
  4. LORATADINE [Concomitant]
     Active Substance: LORATADINE
     Indication: Product used for unknown indication
     Dosage: 10 MG
     Route: 065
  5. Ulcerin [Concomitant]
     Indication: Product used for unknown indication
     Route: 065

REACTIONS (36)
  - Metastases to spine [Not Recovered/Not Resolved]
  - Metastases to lung [Not Recovered/Not Resolved]
  - Metastasis [Unknown]
  - Metastases to breast [Unknown]
  - Metastases to bone [Unknown]
  - Eye irritation [Unknown]
  - Dermatitis allergic [Unknown]
  - Weight decreased [Unknown]
  - Pruritus [Recovering/Resolving]
  - Rash [Unknown]
  - Decreased immune responsiveness [Unknown]
  - Pain [Unknown]
  - Depression [Unknown]
  - Abdominal discomfort [Unknown]
  - Weight increased [Unknown]
  - Somnolence [Unknown]
  - Dyspepsia [Unknown]
  - Oesophagitis [Unknown]
  - Dermatitis [Recovering/Resolving]
  - Eye inflammation [Recovering/Resolving]
  - Inflammation [Recovering/Resolving]
  - Burning sensation [Recovered/Resolved]
  - Gait disturbance [Recovering/Resolving]
  - Burning sensation [Unknown]
  - Erythema [Unknown]
  - Mouth ulceration [Unknown]
  - Dry skin [Unknown]
  - Nausea [Unknown]
  - Vomiting [Recovering/Resolving]
  - Anaemia [Unknown]
  - Asthenia [Unknown]
  - Fatigue [Unknown]
  - Alopecia [Unknown]
  - Decreased appetite [Unknown]
  - Haemoglobin decreased [Unknown]
  - Hypersensitivity [Recovering/Resolving]

NARRATIVE: CASE EVENT DATE: 20221229
